FAERS Safety Report 10483687 (Version 1)
Quarter: 2014Q3

REPORT INFORMATION
  Report Type: Spontaneous
  Country: US (occurrence: None)
  Receive Date: 20140929
  Receipt Date: 20140929
  Transmission Date: 20150326
  Serious: Yes (Hospitalization, Other)
  Sender: FDA-Public Use
  Company Number: None

PATIENT
  Age: 41 Year
  Sex: Male
  Weight: 72.12 kg

DRUGS (1)
  1. SOLU-MEDROL [Suspect]
     Active Substance: METHYLPREDNISOLONE SODIUM SUCCINATE
     Indication: HYPERSENSITIVITY
     Route: 042
     Dates: start: 20140821, end: 20140821

REACTIONS (9)
  - Chest pain [None]
  - Apnoea [None]
  - Blood pressure increased [None]
  - Heart rate increased [None]
  - Prehypertension [None]
  - Troponin increased [None]
  - Activities of daily living impaired [None]
  - Tension headache [None]
  - Panic attack [None]

NARRATIVE: CASE EVENT DATE: 20140821
